FAERS Safety Report 4582660-8 (Version None)
Quarter: 2005Q1

REPORT INFORMATION
  Report Type: 
  Country: None (occurrence: None)
  Receive Date: 20050215
  Receipt Date: 20050202
  Transmission Date: 20050727
  Serious: Yes (Hospitalization)
  Sender: FDA-Public Use
  Company Number: DE-MERCK-0502DEU00023

PATIENT
  Age: 76 Year
  Sex: Male

DRUGS (1)
  1. PROSCAR [Suspect]
     Indication: BENIGN PROSTATIC HYPERPLASIA
     Route: 048
     Dates: start: 19950101, end: 20050101

REACTIONS (10)
  - ARTHROPATHY [None]
  - BREAST TENDERNESS [None]
  - CARCINOEMBRYONIC ANTIGEN INCREASED [None]
  - GYNAECOMASTIA [None]
  - HYPERTENSION [None]
  - INGUINAL HERNIA [None]
  - INTERVERTEBRAL DISC DISORDER [None]
  - TACHYCARDIA [None]
  - TISSUE POLYPEPTIDE ANTIGEN INCREASED [None]
  - WEIGHT DECREASED [None]
